FAERS Safety Report 5542558-5 (Version None)
Quarter: 2007Q4

REPORT INFORMATION
  Report Type: 
  Country: None (occurrence: None)
  Receive Date: 20071120
  Receipt Date: 20070529
  Transmission Date: 20080405
  Serious: Yes (Other)
  Sender: FDA-Public Use
  Company Number: 37557

PATIENT
  Age: 17 Year
  Sex: Male

DRUGS (1)
  1. METHOTREXATE [Suspect]
     Dosage: 9G/M2 (TOTAL 15 GRAMS) IV
     Route: 042
     Dates: start: 20070527

REACTIONS (1)
  - LABORATORY TEST ABNORMAL [None]
